FAERS Safety Report 8170873-8 (Version None)
Quarter: 2012Q1

REPORT INFORMATION
  Report Type: 
  Country: None (occurrence: None)
  Receive Date: 20120104
  Receipt Date: 20111114
  Transmission Date: 20120608
  Serious: No
  Sender: FDA-Public Use
  Company Number: 2011HGS-002792

PATIENT
  Age: 48 Year
  Sex: Female
  Weight: 156.491 kg

DRUGS (3)
  1. AMLODIPINE - BENAZAPRIL (AMLODIPINE W/BENAZEPRIL0 [Concomitant]
  2. BENLYSTA [Suspect]
     Indication: SYSTEMIC LUPUS ERYTHEMATOSUS
     Dosage: INTRAVENOUS DRIP
     Route: 041
     Dates: start: 20111020
  3. HYDROCHLOROTHIAZIDE [Concomitant]

REACTIONS (4)
  - VOMITING [None]
  - DIARRHOEA [None]
  - HEADACHE [None]
  - NAUSEA [None]
